FAERS Safety Report 6083885-5 (Version None)
Quarter: 2009Q1

REPORT INFORMATION
  Report Type: 
  Country: None (occurrence: None)
  Receive Date: 20090217
  Receipt Date: 20090217
  Transmission Date: 20090719
  Serious: Yes (Other)
  Sender: FDA-Public Use
  Company Number: None

PATIENT
  Sex: Female
  Weight: 66.6788 kg

DRUGS (2)
  1. LISINOPRIL [Suspect]
     Dosage: ONCE DAILY 40 MG
     Dates: start: 20030211
  2. LISINOPRIL [Suspect]
     Dosage: ONCE DAILY 40 MG
     Dates: start: 20080206

REACTIONS (2)
  - HYPERTENSION [None]
  - THERAPEUTIC RESPONSE UNEXPECTED WITH DRUG SUBSTITUTION [None]
